FAERS Safety Report 11439287 (Version 1)
Quarter: 2015Q3

REPORT INFORMATION
  Report Type: Spontaneous
  Country: US (occurrence: US)
  Receive Date: 20150901
  Receipt Date: 20150901
  Transmission Date: 20151125
  Serious: No
  Sender: FDA-Public Use
  Company Number: US-ROCHE-1174635

PATIENT
  Sex: Female

DRUGS (3)
  1. PEGASYS [Suspect]
     Active Substance: PEGINTERFERON ALFA-2A
     Route: 065
     Dates: start: 201212
  2. PEGASYS [Suspect]
     Active Substance: PEGINTERFERON ALFA-2A
     Indication: HEPATITIS C
     Route: 065
     Dates: start: 201207
  3. PROCRIT [Concomitant]
     Active Substance: ERYTHROPOIETIN
     Dosage: ADMINISTERED SINCE 8WEEKS
     Route: 065

REACTIONS (3)
  - Exposure via direct contact [Unknown]
  - Fatigue [Unknown]
  - Dyspnoea [Unknown]
